FAERS Safety Report 16085198 (Version 1)
Quarter: 2019Q1

REPORT INFORMATION
  Report Type: Spontaneous
  Country: US (occurrence: US)
  Receive Date: 20190318
  Receipt Date: 20190318
  Transmission Date: 20190418
  Serious: Yes (Hospitalization, Other)
  Sender: FDA-Public Use
  Company Number: US-TARO-2019TAR00154

PATIENT
  Sex: Female
  Weight: 77.1 kg

DRUGS (5)
  1. MUPIROCIN OINTMENT USP 2% [Suspect]
     Active Substance: MUPIROCIN
     Indication: STAPHYLOCOCCAL INFECTION
     Dosage: 2 MG, 2X/DAY
     Route: 061
     Dates: start: 2014
  2. DOXYCYCLINE. [Suspect]
     Active Substance: DOXYCYCLINE
     Indication: INFECTION
     Dosage: 1000 MG, 1X/DAY
     Route: 048
     Dates: start: 2017
  3. LISINOPRIL. [Concomitant]
     Active Substance: LISINOPRIL
  4. ^VERLANZA^ [Concomitant]
  5. PRAVASTATIN. [Concomitant]
     Active Substance: PRAVASTATIN

REACTIONS (16)
  - Rash generalised [Not Recovered/Not Resolved]
  - Drug ineffective [Not Recovered/Not Resolved]
  - Gastrointestinal disorder [Unknown]
  - Hepatic enzyme abnormal [Not Recovered/Not Resolved]
  - Staphylococcal infection [Not Recovered/Not Resolved]
  - Renal disorder [Not Recovered/Not Resolved]
  - Skin ulcer [Unknown]
  - Incorrect product administration duration [Not Recovered/Not Resolved]
  - Inappropriate schedule of product administration [Not Recovered/Not Resolved]
  - Diverticulitis [Unknown]
  - Pain [Unknown]
  - Gallbladder operation [Recovered/Resolved]
  - Poor peripheral circulation [Unknown]
  - Liver injury [Not Recovered/Not Resolved]
  - Wound [Unknown]
  - Skin lesion [Not Recovered/Not Resolved]

NARRATIVE: CASE EVENT DATE: 2014
